FAERS Safety Report 5194511-1 (Version None)
Quarter: 2006Q4

REPORT INFORMATION
  Report Type: 
  Country: None (occurrence: None)
  Receive Date: 20061222
  Receipt Date: 20061215
  Transmission Date: 20070319
  Serious: Yes (Hospitalization)
  Sender: FDA-Public Use
  Company Number: CHWYE854315DEC06

PATIENT
  Age: 8 Year
  Sex: Male

DRUGS (4)
  1. TAZOBAC (PIPERACILLIN/TAZOBACTAM, INJECTION) [Suspect]
     Dosage: 8 G 1X PER 1 DAY INTRAVENOUS DRIP
     Route: 041
     Dates: start: 20061019, end: 20061101
  2. CIPROFLOXACIN [Suspect]
     Dosage: 1000 MG 1X PER 1 DAY INTRAVENOUS DRIP
     Route: 041
     Dates: start: 20061019, end: 20061102
  3. FORTAM (CEFTAZIDIME) [Concomitant]
  4. AMIKIN [Concomitant]

REACTIONS (5)
  - AGRANULOCYTOSIS [None]
  - ANAEMIA [None]
  - CONDITION AGGRAVATED [None]
  - CYTOLYTIC HEPATITIS [None]
  - PANCYTOPENIA [None]
